FAERS Safety Report 6165839-3 (Version None)
Quarter: 2009Q2

REPORT INFORMATION
  Report Type: 
  Country: None (occurrence: None)
  Receive Date: 20090423
  Receipt Date: 20090410
  Transmission Date: 20091009
  Serious: Yes (Hospitalization)
  Sender: FDA-Public Use
  Company Number: JP-PFIZER INC-2009192377

PATIENT

DRUGS (1)
  1. SALAZOPYRIN [Suspect]
     Dosage: 4500 MG/DAY
     Route: 048

REACTIONS (1)
  - ECZEMA [None]
